FAERS Safety Report 5703776-6 (Version None)
Quarter: 2008Q2

REPORT INFORMATION
  Report Type: 
  Country: None (occurrence: None)
  Receive Date: 20080414
  Receipt Date: 20080410
  Transmission Date: 20081010
  Serious: Yes (Hospitalization)
  Sender: FDA-Public Use
  Company Number: JP-SP-2008-00587

PATIENT
  Age: 79 Year
  Sex: Male

DRUGS (2)
  1. IMMUCYST [Suspect]
     Indication: BLADDER CANCER
     Route: 043
     Dates: end: 20080218
  2. IMMUCYST [Suspect]
     Route: 043
     Dates: end: 20080218

REACTIONS (4)
  - BLOOD PRESSURE DECREASED [None]
  - CONTRACTED BLADDER [None]
  - PYREXIA [None]
  - SEPTIC SHOCK [None]
